FAERS Safety Report 17523040 (Version 6)
Quarter: 2025Q3

REPORT INFORMATION
  Report Type: Spontaneous
  Country: EU (occurrence: EU)
  Receive Date: 20200311
  Receipt Date: 20250828
  Transmission Date: 20251021
  Serious: Yes (Other)
  Sender: AUROBINDO
  Company Number: EU-MENARINI-PL-MEN-071431

PATIENT
  Age: 52 Year
  Sex: Female

DRUGS (13)
  1. PERINDOPRIL [Interacting]
     Active Substance: PERINDOPRIL
     Indication: Hypertension
     Dosage: 10 MILLIGRAM, ONCE A DAY
     Route: 065
  2. DICLOFENAC SODIUM [Interacting]
     Active Substance: DICLOFENAC SODIUM
     Indication: Arthralgia
     Dosage: 100 MILLIGRAM, ONCE A DAY
     Route: 048
  3. DICLOFENAC SODIUM [Interacting]
     Active Substance: DICLOFENAC SODIUM
     Indication: Pain
     Route: 048
  4. IBUPROFEN [Interacting]
     Active Substance: IBUPROFEN
     Indication: Arthralgia
     Route: 065
  5. IBUPROFEN [Interacting]
     Active Substance: IBUPROFEN
     Indication: Pain
  6. KETOPROFEN [Interacting]
     Active Substance: KETOPROFEN
     Indication: Arthralgia
     Route: 065
  7. KETOPROFEN [Interacting]
     Active Substance: KETOPROFEN
     Indication: Pain
  8. ESTROGEN NOS [Concomitant]
     Active Substance: ESTROGENS
     Indication: Menopausal symptoms
     Route: 065
  9. ESTROGEN NOS [Concomitant]
     Active Substance: ESTROGENS
     Indication: Mood altered
  10. ESTROGEN NOS [Concomitant]
     Active Substance: ESTROGENS
     Indication: Hot flush
  11. AMLODIPINE [Interacting]
     Active Substance: AMLODIPINE BESYLATE
     Indication: Product used for unknown indication
     Dosage: 10 MILLIGRAM, ONCE A DAY
     Route: 065
  12. TRAMADOL [Interacting]
     Active Substance: TRAMADOL
     Indication: Product used for unknown indication
     Dosage: 75 MILLIGRAM, ONCE A DAY
     Route: 065
  13. ACETAMINOPHEN [Interacting]
     Active Substance: ACETAMINOPHEN
     Indication: Product used for unknown indication
     Dosage: 650 MILLIGRAM, ONCE A DAY
     Route: 065

REACTIONS (6)
  - Blood pressure increased [Recovered/Resolved]
  - Drug interaction [Recovered/Resolved]
  - Inadequate analgesia [Recovered/Resolved]
  - Inhibitory drug interaction [Recovered/Resolved]
  - Labelled drug-drug interaction medication error [Recovered/Resolved]
  - Off label use [Unknown]

NARRATIVE: CASE EVENT DATE: 20190101
